FAERS Safety Report 7255505-5 (Version None)
Quarter: 2011Q1

REPORT INFORMATION
  Report Type: 
  Country: None (occurrence: None)
  Receive Date: 20110129
  Receipt Date: 20100308
  Transmission Date: 20110831
  Serious: Yes (Other)
  Sender: FDA-Public Use
  Company Number: US-ABBOTT-10P-163-0630961-00

PATIENT
  Sex: Female

DRUGS (6)
  1. HUMIRA [Suspect]
     Indication: PSORIASIS
     Dates: start: 20081201, end: 20100301
  2. HUMIRA [Suspect]
     Indication: PSORIATIC ARTHROPATHY
  3. METOPROLOL [Concomitant]
     Indication: HYPERTENSION
     Dosage: DAILY
  4. CRESTOR [Concomitant]
     Indication: BLOOD CHOLESTEROL INCREASED
     Dosage: DAILY
  5. MELOXICAM [Concomitant]
     Indication: PSORIATIC ARTHROPATHY
  6. TRIAMTERENE [Concomitant]
     Indication: HYPERTENSION
     Dosage: DAILY

REACTIONS (1)
  - BREAST CANCER IN SITU [None]
